FAERS Safety Report 13943487 (Version 1)
Quarter: 2017Q3

REPORT INFORMATION
  Report Type: Spontaneous
  Country: US (occurrence: None)
  Receive Date: 20170907
  Receipt Date: 20170907
  Transmission Date: 20171128
  Serious: No
  Sender: FDA-Public Use
  Company Number: None

PATIENT
  Age: 44 Year
  Sex: Female
  Weight: 77.11 kg

DRUGS (1)
  1. GABAPENTIN 600MG [Suspect]
     Active Substance: GABAPENTIN
     Indication: BRACHIAL PLEXOPATHY
     Dosage: 1 TAB 4XDAILY MOUTH
     Route: 048
     Dates: start: 1995

REACTIONS (4)
  - Drug prescribing error [None]
  - Laziness [None]
  - Inappropriate schedule of drug administration [None]
  - Abnormal behaviour [None]

NARRATIVE: CASE EVENT DATE: 20080101
